FAERS Safety Report 9143375 (Version 2)
Quarter: 2013Q1

REPORT INFORMATION
  Report Type: Spontaneous
  Country: US (occurrence: US)
  Receive Date: 20130306
  Receipt Date: 20130318
  Transmission Date: 20140127
  Serious: Yes (Other)
  Sender: FDA-Public Use
  Company Number: US-SANOFI-AVENTIS-2013SA016411

PATIENT
  Age: 49 Year
  Sex: Female

DRUGS (4)
  1. AUBAGIO [Suspect]
     Indication: MULTIPLE SCLEROSIS
     Route: 048
     Dates: start: 20130119, end: 201302
  2. PROZAC [Concomitant]
     Indication: BIPOLAR DISORDER
     Dates: start: 1982
  3. TEGRETOL [Concomitant]
     Indication: BIPOLAR DISORDER
  4. SEROQUEL [Concomitant]
     Indication: BIPOLAR DISORDER
     Dates: start: 2012

REACTIONS (5)
  - Suicidal ideation [Recovered/Resolved]
  - Depression [Recovered/Resolved]
  - Abdominal discomfort [Unknown]
  - Pain in extremity [Recovered/Resolved]
  - Diarrhoea [Recovered/Resolved]
